FAERS Safety Report 8823736 (Version 1)
Quarter: 2012Q4

REPORT INFORMATION
  Report Type: 
  Country: US (occurrence: US)
  Receive Date: 20121003
  Receipt Date: 20121003
  Transmission Date: 20130627
  Serious: Yes (Other)
  Sender: FDA-Public Use
  Company Number: US-BAYER-2012-103329

PATIENT
  Age: 37 Year
  Sex: Female

DRUGS (3)
  1. CLOTRIMAZOLE [Suspect]
     Indication: VULVOVAGINITIS TRICHOMONAL
     Route: 067
  2. METRONIDAZOLE [Suspect]
     Indication: VAGINITIS BACTERIAL
  3. CLINDAMYCIN [Suspect]
     Indication: VULVOVAGINITIS TRICHOMONAL
     Route: 048

REACTIONS (3)
  - Vulvovaginitis trichomonal [None]
  - Hypersensitivity [Recovered/Resolved]
  - No therapeutic response [None]
